FAERS Safety Report 4482376-2 (Version None)
Quarter: 2004Q4

REPORT INFORMATION
  Report Type: 
  Country: None (occurrence: None)
  Receive Date: 20041022
  Receipt Date: 20030930
  Transmission Date: 20050328
  Serious: No
  Sender: FDA-Public Use
  Company Number: US-BRISTOL-MYERS SQUIBB COMPANY-12397469

PATIENT
  Sex: Female

DRUGS (1)
  1. BUSPAR [Suspect]
     Route: 048

REACTIONS (1)
  - RASH [None]
